FAERS Safety Report 26177920 (Version 1)
Quarter: 2025Q4

REPORT INFORMATION
  Report Type: Spontaneous
  Country: US (occurrence: US)
  Receive Date: 20251219
  Receipt Date: 20251219
  Transmission Date: 20260117
  Serious: Yes (Hospitalization, Other)
  Sender: ALEMBIC
  Company Number: US-ALEMBIC PHARMACUETICALS LIMITED-2025SCAL001785

PATIENT

DRUGS (2)
  1. FAMOTIDINE [Suspect]
     Active Substance: FAMOTIDINE
     Indication: Cough
     Dosage: 20 MILLIGRAM, QD
     Route: 065
  2. FAMOTIDINE [Suspect]
     Active Substance: FAMOTIDINE
     Dosage: 20 MILLIGRAM, BID
     Route: 065

REACTIONS (4)
  - Toxicity to various agents [Recovered/Resolved]
  - Hallucination, visual [Recovered/Resolved]
  - Dosage not adjusted [Unknown]
  - Drug level above therapeutic [Unknown]
